FAERS Safety Report 20506724 (Version 3)
Quarter: 2022Q2

REPORT INFORMATION
  Report Type: Spontaneous
  Country: US (occurrence: US)
  Receive Date: 20220223
  Receipt Date: 20220401
  Transmission Date: 20220721
  Serious: No
  Sender: FDA-Public Use
  Company Number: US-TEVA-2022-US-2006443

PATIENT
  Sex: Male

DRUGS (1)
  1. ADIPEX-P [Suspect]
     Active Substance: PHENTERMINE HYDROCHLORIDE
     Route: 065

REACTIONS (2)
  - Drug ineffective [Unknown]
  - Wrong technique in product usage process [Unknown]
